FAERS Safety Report 8317580-6 (Version None)
Quarter: 2012Q2

REPORT INFORMATION
  Report Type: 
  Country: None (occurrence: None)
  Receive Date: 20120427
  Receipt Date: 20111214
  Transmission Date: 20120825
  Serious: No
  Sender: FDA-Public Use
  Company Number: US-GLAXOSMITHKLINE-A0958377A

PATIENT

DRUGS (1)
  1. ZOFRAN [Suspect]
     Indication: MOUTH ULCERATION
     Route: 065

REACTIONS (2)
  - HEADACHE [None]
  - OFF LABEL USE [None]
